FAERS Safety Report 9722447 (Version 2)
Quarter: 2013Q4

REPORT INFORMATION
  Report Type: Spontaneous
  Country: IT (occurrence: IT)
  Receive Date: 20131202
  Receipt Date: 20131224
  Transmission Date: 20140711
  Serious: Yes (Other)
  Sender: FDA-Public Use
  Company Number: PHHY2013IT138236

PATIENT
  Sex: Female

DRUGS (2)
  1. TEGRETOL [Suspect]
     Indication: TRIGEMINAL NEURALGIA
     Dosage: 800 MG, DAILY
     Route: 048
     Dates: start: 20131115, end: 20131116
  2. CARDIRENE [Concomitant]
     Dosage: 75 MG, PER DAY

REACTIONS (8)
  - Vertigo [Recovering/Resolving]
  - Cerebellar syndrome [Recovering/Resolving]
  - Dysarthria [Recovering/Resolving]
  - Posture abnormal [Recovering/Resolving]
  - Dizziness [Recovering/Resolving]
  - Myoclonus [Recovering/Resolving]
  - Nausea [Recovering/Resolving]
  - Nystagmus [Recovering/Resolving]
